FAERS Safety Report 17798406 (Version 1)
Quarter: 2020Q2

REPORT INFORMATION
  Report Type: Spontaneous
  Country: NZ (occurrence: NZ)
  Receive Date: 20200518
  Receipt Date: 20200518
  Transmission Date: 20200714
  Serious: Yes (Hospitalization)
  Sender: FDA-Public Use
  Company Number: NZ-JNJFOC-20200511623

PATIENT
  Age: 5 Decade
  Sex: Female

DRUGS (1)
  1. TRAMADOL HYDROCHLORIDE. [Suspect]
     Active Substance: TRAMADOL HYDROCHLORIDE
     Indication: PAIN
     Dosage: 2 DOSAGE FORM, EVERY 4 HRS
     Route: 065

REACTIONS (7)
  - Agitation [Unknown]
  - Accidental overdose [Unknown]
  - Speech disorder [Unknown]
  - Tremor [Unknown]
  - Crying [Unknown]
  - Hallucination [Unknown]
  - Product dispensing error [Unknown]
